FAERS Safety Report 9667207 (Version 1)
Quarter: 2013Q4

REPORT INFORMATION
  Report Type: Spontaneous
  Country: BR (occurrence: None)
  Receive Date: 20131031
  Receipt Date: 20131031
  Transmission Date: 20140711
  Serious: Yes (Hospitalization)
  Sender: FDA-Public Use
  Company Number: 2013---3349

PATIENT
  Age: 62 Year
  Sex: Female

DRUGS (1)
  1. ACTONEL [Suspect]
     Indication: MINERAL SUPPLEMENTATION
     Dosage: 150MG ONCE MONTHLY, ORAL
     Route: 048
     Dates: end: 201303

REACTIONS (3)
  - Gastritis atrophic [None]
  - Abdominal pain upper [None]
  - Diverticulitis [None]
